FAERS Safety Report 6786230-2 (Version None)
Quarter: 2010Q2

REPORT INFORMATION
  Report Type: 
  Country: None (occurrence: None)
  Receive Date: 20100623
  Receipt Date: 20100610
  Transmission Date: 20101027
  Serious: Yes (Hospitalization)
  Sender: FDA-Public Use
  Company Number: JP-AMGEN-QUU413038

PATIENT
  Sex: Female
  Weight: 45 kg

DRUGS (14)
  1. ENBREL [Suspect]
     Indication: RHEUMATOID ARTHRITIS
     Route: 058
     Dates: start: 20080604, end: 20080903
  2. ENBREL [Suspect]
     Route: 058
     Dates: start: 20081203, end: 20090128
  3. ENBREL [Suspect]
     Route: 058
     Dates: start: 20090318, end: 20090612
  4. PREDONINE [Suspect]
     Indication: DRUG USE FOR UNKNOWN INDICATION
     Dosage: 10 MG, FREQUENCY NOT SPECIFIED
     Route: 048
     Dates: end: 20070703
  5. PREDONINE [Suspect]
     Dosage: 7 MG, FREQUENCY NOT SPECIFIED
     Route: 048
     Dates: start: 20070704, end: 20080603
  6. PREDONINE [Suspect]
     Dosage: 4 MG, FREQUENCY NOT SPECIFIED
     Route: 048
     Dates: start: 20080604, end: 20081001
  7. PREDONINE [Suspect]
     Dosage: 6 MG, FREQUENCY NOT SPECIFIED
     Route: 048
     Dates: start: 20081001
  8. RHEUMATREX [Suspect]
     Indication: RHEUMATOID ARTHRITIS
     Dosage: UNSPECIFIED
     Route: 048
  9. RHEUMATREX [Suspect]
     Route: 048
     Dates: start: 20070704
  10. FOLIAMIN [Concomitant]
     Indication: RHEUMATOID ARTHRITIS
     Route: 048
     Dates: start: 20070704
  11. INDOMETHACIN SODIUM [Concomitant]
     Indication: RHEUMATOID ARTHRITIS
     Route: 054
  12. ISCOTIN [Concomitant]
     Indication: ANTIBIOTIC PROPHYLAXIS
     Route: 048
     Dates: start: 20080423, end: 20090409
  13. PYDOXAL [Concomitant]
     Indication: ANTIBIOTIC PROPHYLAXIS
     Route: 048
     Dates: start: 20080423, end: 20090409
  14. FOSAMAX [Concomitant]
     Indication: OSTEOPOROSIS
     Route: 048

REACTIONS (8)
  - ARTHRITIS BACTERIAL [None]
  - CONDITION AGGRAVATED [None]
  - CULTURE POSITIVE [None]
  - DERMATITIS PSORIASIFORM [None]
  - DIARRHOEA [None]
  - DRUG EFFECT DECREASED [None]
  - RHEUMATOID ARTHRITIS [None]
  - VOMITING [None]
